FAERS Safety Report 24964020 (Version 1)
Quarter: 2025Q1

REPORT INFORMATION
  Report Type: Spontaneous
  Country: RU (occurrence: RU)
  Receive Date: 20250213
  Receipt Date: 20250213
  Transmission Date: 20250409
  Serious: Yes (Hospitalization, Other)
  Sender: AMGEN
  Company Number: RU-AMGEN-RUSSP2025024977

PATIENT
  Age: 9 Year
  Sex: Male

DRUGS (8)
  1. ROMIPLOSTIM [Suspect]
     Active Substance: ROMIPLOSTIM
     Indication: Wiskott-Aldrich syndrome
     Dosage: 9 MICROGRAM/KILOGRAM, QWK
     Route: 058
  2. FILGRASTIM [Suspect]
     Active Substance: FILGRASTIM
     Indication: Haematopoietic stem cell mobilisation
     Route: 065
  3. AMINOCAPROIC ACID [Concomitant]
     Active Substance: AMINOCAPROIC ACID
  4. ETHAMSYLATE [Concomitant]
     Active Substance: ETHAMSYLATE
  5. INTERFERON ALFA-2B [Concomitant]
     Active Substance: INTERFERON ALFA-2B
  6. UNSPECIFIED INGREDIENT [Concomitant]
     Active Substance: UNSPECIFIED INGREDIENT
  7. Immunoglobulin [Concomitant]
     Dosage: 0.6 GRAM PER KILOGRAM, QD, THREE CONSECUTIVE WEEKS
     Route: 040
  8. PLERIXAFOR [Concomitant]
     Active Substance: PLERIXAFOR

REACTIONS (5)
  - Chronic graft versus host disease [Recovered/Resolved]
  - Bone marrow transplant rejection [Unknown]
  - Affect lability [Unknown]
  - Anxiety [Unknown]
  - Off label use [Unknown]
